FAERS Safety Report 5056480-4 (Version None)
Quarter: 2006Q2

REPORT INFORMATION
  Report Type: 
  Country: None (occurrence: None)
  Receive Date: 20060616
  Receipt Date: 20060316
  Transmission Date: 20061013
  Serious: Yes (Hospitalization, Other)
  Sender: FDA-Public Use
  Company Number: 200612599US

PATIENT
  Sex: Female

DRUGS (6)
  1. LANTUS [Suspect]
     Dosage: 20 U QD
  2. LANTUS [Suspect]
     Dosage: 25 U QD
  3. LANTUS [Suspect]
     Dosage: 40 U QD
  4. INSULIN HUMAN INJECTION [Concomitant]
  5. ISOPHANE [Concomitant]
  6. INSULIN HUMAN ZINC SUSPENSION (HUMULIN 70/30) [Concomitant]

REACTIONS (1)
  - HYPOGLYCAEMIA [None]
